FAERS Safety Report 9897843 (Version 1)
Quarter: 2014Q1

REPORT INFORMATION
  Report Type: Spontaneous
  Country: US (occurrence: US)
  Receive Date: 20140214
  Receipt Date: 20140214
  Transmission Date: 20141002
  Serious: No
  Sender: FDA-Public Use
  Company Number: US-PFIZER INC-2014040776

PATIENT
  Age: 69 Year
  Sex: Female
  Weight: 94.33 kg

DRUGS (20)
  1. LYRICA [Suspect]
     Indication: FIBROMYALGIA
     Dosage: UNK
     Dates: start: 2004, end: 20140123
  2. LYRICA [Suspect]
     Indication: POST HERPETIC NEURALGIA
  3. ACIDOPHILUS [Concomitant]
     Dosage: UNK
  4. ALLOPURINOL [Concomitant]
     Dosage: UNK
  5. BABY ASPIRIN [Concomitant]
     Dosage: UNK
  6. CALCIUM ACETATE [Concomitant]
     Dosage: UNK
  7. CAPTOPRIL [Concomitant]
     Dosage: UNK
  8. CARVEDILOL [Concomitant]
     Dosage: UNK
  9. CYMBALTA [Concomitant]
     Dosage: UNK
  10. VORICONAZOLE [Concomitant]
     Dosage: UNK
  11. METFORMIN [Concomitant]
     Dosage: UNK
  12. NEXIUM [Concomitant]
     Dosage: UNK
  13. SIMVASTATIN [Concomitant]
     Dosage: UNK
  14. ROPINIROLE [Concomitant]
     Dosage: UNK
  15. NYSTATIN [Concomitant]
     Dosage: UNK, POWDER
  16. NYSTATIN [Concomitant]
     Dosage: UNK
  17. TRAMADOL [Concomitant]
     Dosage: UNK
  18. FOLIC ACID [Concomitant]
     Dosage: UNK
  19. TORSEMIDE [Concomitant]
     Dosage: UNK
  20. HYDROXY CORTISONE [Concomitant]
     Dosage: UNK

REACTIONS (6)
  - Pain [Unknown]
  - Hot flush [Unknown]
  - Feeling cold [Unknown]
  - Malaise [Unknown]
  - Insomnia [Unknown]
  - Diarrhoea [Unknown]
